FAERS Safety Report 8305697 (Version 5)
Quarter: 2013Q3

REPORT INFORMATION
  Report Type: Spontaneous
  Country: US (occurrence: US)
  Receive Date: 20111221
  Receipt Date: 20130815
  Transmission Date: 20140515
  Serious: Yes (Hospitalization)
  Sender: FDA-Public Use
  Company Number: US-GLAXOSMITHKLINE-A0903063A

PATIENT
  Age: 62 Year
  Sex: Male

DRUGS (2)
  1. AVANDIA [Suspect]
     Indication: DIABETES MELLITUS
     Dosage: 2MG PER DAY
     Route: 048
     Dates: start: 200101, end: 20081003
  2. AVANDAMET [Suspect]
     Indication: ACNE
     Route: 048
     Dates: start: 200304, end: 20081215

REACTIONS (7)
  - Myocardial infarction [Not Recovered/Not Resolved]
  - Atrioventricular block complete [Unknown]
  - Multi-organ failure [Unknown]
  - Bradycardia [Unknown]
  - Left ventricular dysfunction [Unknown]
  - Coronary artery disease [Unknown]
  - Cardiovascular disorder [Unknown]
